FAERS Safety Report 6891823-8 (Version None)
Quarter: 2010Q3

REPORT INFORMATION
  Report Type: 
  Country: None (occurrence: None)
  Receive Date: 20100731
  Receipt Date: 20071031
  Transmission Date: 20110219
  Serious: No
  Sender: FDA-Public Use
  Company Number: US-PFIZER INC-2007089211

PATIENT
  Sex: Female
  Weight: 68.95 kg

DRUGS (5)
  1. NORVASC [Suspect]
     Indication: HYPERTENSION
     Dates: start: 20070101
  2. LIPITOR [Suspect]
  3. ACTONEL [Concomitant]
     Indication: OSTEOPOROSIS
  4. TOPROL-XL [Concomitant]
  5. COZAAR [Concomitant]

REACTIONS (4)
  - BLOOD PRESSURE INADEQUATELY CONTROLLED [None]
  - CONSTIPATION [None]
  - MALAISE [None]
  - RESTLESSNESS [None]
